FAERS Safety Report 9118396 (Version 1)
Quarter: 2013Q1

REPORT INFORMATION
  Report Type: Spontaneous
  Country: US (occurrence: None)
  Receive Date: 20130221
  Receipt Date: 20130221
  Transmission Date: 20140127
  Serious: Yes (Other)
  Sender: FDA-Public Use
  Company Number: None

PATIENT
  Sex: 0

DRUGS (1)
  1. FLECAINIDE ACETATE [Suspect]
     Indication: ATRIAL TACHYCARDIA
     Dates: start: 20130125, end: 20130205

REACTIONS (7)
  - Hypertension [None]
  - Heart rate increased [None]
  - Dyspnoea [None]
  - Headache [None]
  - Fatigue [None]
  - General physical health deterioration [None]
  - Pulse abnormal [None]
